FAERS Safety Report 7699593-0 (Version None)
Quarter: 2011Q3

REPORT INFORMATION
  Report Type: 
  Country: None (occurrence: None)
  Receive Date: 20110822
  Receipt Date: 20110809
  Transmission Date: 20111222
  Serious: Yes (Hospitalization)
  Sender: FDA-Public Use
  Company Number: US-BIOGENIDEC-2010BI035835

PATIENT
  Sex: Female

DRUGS (2)
  1. AVONEX [Suspect]
     Indication: MULTIPLE SCLEROSIS
     Route: 030
     Dates: start: 20020707
  2. AVONEX [Suspect]
     Route: 030
     Dates: end: 20100901

REACTIONS (8)
  - APPENDICECTOMY [None]
  - VOMITING [None]
  - CHOLELITHIASIS [None]
  - FEELING ABNORMAL [None]
  - COLON CANCER [None]
  - THROMBOSIS [None]
  - ASTHENIA [None]
  - HAEMORRHAGE [None]
